FAERS Safety Report 5657754-6 (Version None)
Quarter: 2008Q1

REPORT INFORMATION
  Report Type: 
  Country: None (occurrence: None)
  Receive Date: 20080305
  Receipt Date: 20080218
  Transmission Date: 20080703
  Serious: Yes (Other)
  Sender: FDA-Public Use
  Company Number: 2007S1009099

PATIENT
  Age: 42 Year
  Sex: Male
  Weight: 70 kg

DRUGS (5)
  1. ACYCLOVIR [Suspect]
     Indication: MENINGOENCEPHALITIS HERPETIC
     Dosage: 1 GM; Q8H; INTRAVENOUS
     Route: 042
  2. VALPROIC ACID [Concomitant]
  3. CEFOTAXIME [Concomitant]
  4. FOSFOMYCIN [Concomitant]
  5. METRONIDAZOLE HCL [Concomitant]

REACTIONS (4)
  - BRAIN INJURY [None]
  - CONDITION AGGRAVATED [None]
  - CONFUSIONAL STATE [None]
  - RENAL FAILURE ACUTE [None]
